FAERS Safety Report 8024196-8 (Version None)
Quarter: 2012Q1

REPORT INFORMATION
  Report Type: 
  Country: None (occurrence: None)
  Receive Date: 20120105
  Receipt Date: 20120102
  Transmission Date: 20120608
  Serious: Yes (Hospitalization, Other)
  Sender: FDA-Public Use
  Company Number: PHHY2011NL102553

PATIENT
  Sex: Male
  Weight: 75 kg

DRUGS (14)
  1. OXYCONTIN [Concomitant]
     Dosage: 80 MG, 2 DD
  2. DEXAMETHASONE SODIUM PHOSPHATE [Concomitant]
     Dosage: 4 MG, 1 DD
  3. ZOMETA [Suspect]
     Indication: PROSTATE CANCER METASTATIC
     Dosage: 4 MG/5ML ONCE PER 28 DAYS
     Dates: start: 20110412
  4. ZOMETA [Suspect]
     Dosage: 4 MG/5ML ONCE PER 28 DAYS
     Dates: start: 20111123
  5. ZOMETA [Suspect]
     Dosage: 4 MG/5ML ONCE PER 28 DAYS
     Dates: start: 20111123
  6. AMLODIPINE [Concomitant]
     Dosage: 5 MG, 1DD
  7. ZOMETA [Suspect]
     Dosage: 4 MG/5ML ONCE PER 28 DAYS
     Dates: start: 20110330
  8. OXYCODONE HCL [Concomitant]
     Dosage: 10 MG, 1-6DD
  9. LISINOPRIL AND HYDROCHLOROTHIAZIDE [Concomitant]
     Dosage: 20/12.5 (1 DD 1)
  10. SIMVASTATIN [Concomitant]
     Dosage: 20 MG, UNK
  11. FENTANYL [Concomitant]
     Dosage: 100 UG, 1X3DD.
  12. MOVICOLON [Concomitant]
     Dosage: 4 MG, UNK
  13. ZOMETA [Suspect]
     Dosage: 4 MG/5ML ONCE PER 28 DAYS
     Dates: start: 20111025
  14. ONDANSETRON [Concomitant]
     Dosage: 4 MG, UNK

REACTIONS (2)
  - TERMINAL STATE [None]
  - BONE PAIN [None]
